FAERS Safety Report 5481469-0 (Version None)
Quarter: 2007Q4

REPORT INFORMATION
  Report Type: 
  Country: None (occurrence: None)
  Receive Date: 20071010
  Receipt Date: 20071002
  Transmission Date: 20080405
  Serious: Yes (Hospitalization)
  Sender: FDA-Public Use
  Company Number: BE-BRISTOL-MYERS SQUIBB COMPANY-13894399

PATIENT
  Age: 36 Year
  Sex: Male

DRUGS (2)
  1. ABATACEPT [Suspect]
     Indication: COLITIS ULCERATIVE
     Dosage: DISCONTINUED ON 02-AUG-07,RESTARTED ON 28-AUG-07
     Route: 042
     Dates: start: 20070605
  2. PENTASA [Concomitant]
     Dates: start: 20050701

REACTIONS (1)
  - COLITIS [None]
